FAERS Safety Report 25785856 (Version 1)
Quarter: 2025Q3

REPORT INFORMATION
  Report Type: Spontaneous
  Country: US (occurrence: US)
  Receive Date: 20250910
  Receipt Date: 20250910
  Transmission Date: 20251020
  Serious: No
  Sender: ELI LILLY AND COMPANY
  Company Number: US-ELI_LILLY_AND_COMPANY-US202509005749

PATIENT
  Age: 59 Year
  Sex: Female

DRUGS (5)
  1. ZEPBOUND [Suspect]
     Active Substance: TIRZEPATIDE
     Indication: Weight control
     Dosage: 5 MG, WEEKLY (1/W)
     Route: 058
     Dates: start: 20250725
  2. ZEPBOUND [Suspect]
     Active Substance: TIRZEPATIDE
     Route: 058
  3. FLUVASTATIN [Concomitant]
     Active Substance: FLUVASTATIN SODIUM
     Indication: Blood cholesterol increased
  4. OMEPRAZOLE [Concomitant]
     Active Substance: OMEPRAZOLE
     Indication: Dyspepsia
  5. METOPROLOL [Concomitant]
     Active Substance: METOPROLOL
     Indication: Hypertension

REACTIONS (2)
  - Lymph node pain [Not Recovered/Not Resolved]
  - Off label use [Unknown]

NARRATIVE: CASE EVENT DATE: 20250725
